FAERS Safety Report 6877870-0 (Version None)
Quarter: 2010Q3

REPORT INFORMATION
  Report Type: 
  Country: None (occurrence: None)
  Receive Date: 20100727
  Receipt Date: 20100715
  Transmission Date: 20110219
  Serious: Yes (Hospitalization, Other)
  Sender: FDA-Public Use
  Company Number: PHHY2010BR47030

PATIENT
  Age: 64 Year
  Sex: Female
  Weight: 48 kg

DRUGS (9)
  1. EXELON [Suspect]
     Indication: DEMENTIA ALZHEIMER'S TYPE
     Dosage: 3 MG, BID
     Route: 048
     Dates: start: 20080601
  2. EXELON [Suspect]
     Dosage: 4.5 MG, BID
     Route: 048
  3. EXELON [Suspect]
     Dosage: 1.5 MG, TID
     Route: 048
  4. ALPRAZOLAM [Concomitant]
     Dosage: UNK
  5. CITALOPRAM HYDROBROMIDE [Concomitant]
     Dosage: 1 DF, QD
  6. BETACORT [Concomitant]
     Dosage: 1 DF, QD
     Route: 048
  7. LOSARTAN POTASSIUM [Concomitant]
     Indication: HYPERTENSION
     Dosage: 1 DF, QD
     Route: 048
  8. INSULIN [Concomitant]
     Indication: DIABETES MELLITUS
     Dosage: UNK
  9. ANTIBIOTICS [Concomitant]
     Dosage: UNK

REACTIONS (13)
  - ABDOMINAL DISCOMFORT [None]
  - AGGRESSION [None]
  - ANXIETY [None]
  - DEHYDRATION [None]
  - DEMENTIA ALZHEIMER'S TYPE [None]
  - FEELING ABNORMAL [None]
  - GASTROSTOMY [None]
  - HYPERGLYCAEMIA [None]
  - HYPOPHAGIA [None]
  - MALAISE [None]
  - NAUSEA [None]
  - TREATMENT NONCOMPLIANCE [None]
  - URINARY TRACT INFECTION [None]
